FAERS Safety Report 20706021 (Version 5)
Quarter: 2022Q3

REPORT INFORMATION
  Report Type: Report from Study
  Country: CN (occurrence: CN)
  Receive Date: 20220413
  Receipt Date: 20220801
  Transmission Date: 20221026
  Serious: Yes (Life-Threatening, Other)
  Sender: FDA-Public Use
  Company Number: CN-BRISTOL-MYERS SQUIBB COMPANY-2022-016292

PATIENT
  Age: 78 Year
  Sex: Male
  Weight: 72 kg

DRUGS (20)
  1. AZACITIDINE [Suspect]
     Active Substance: AZACITIDINE
     Indication: Myelodysplastic syndrome
     Dosage: 7 DAYS WITHIN THE FIRST 9 CALENDAR DAYS OF EACH 28-DAY CYCLE (75 MG/M2,1 IN 1 DAY)
     Route: 058
     Dates: start: 20220223, end: 20220301
  2. VENETOCLAX [Suspect]
     Active Substance: VENETOCLAX
     Indication: Myelodysplastic syndrome
     Dosage: DAYS 1-14 OF EACH 28-DAY CYCLE
     Route: 048
     Dates: start: 20220223, end: 20220308
  3. BICYCLOL [Concomitant]
     Active Substance: BICYCLOL
     Indication: Liver disorder
     Dosage: 3 IN 1 D
     Route: 048
     Dates: start: 20220323, end: 20220327
  4. BICYCLOL [Concomitant]
     Active Substance: BICYCLOL
  5. LANSOPRAZOLE [Concomitant]
     Active Substance: LANSOPRAZOLE
     Indication: Prophylaxis
     Dosage: 1 IN 1 D
     Route: 041
     Dates: start: 20220222, end: 20220327
  6. LANSOPRAZOLE [Concomitant]
     Active Substance: LANSOPRAZOLE
     Indication: Gastric disorder
     Dosage: 1 IN 1 D
     Route: 041
     Dates: start: 20220213, end: 20220215
  7. MAGNESIUM ISOGLYCYRRHIZINATE [Concomitant]
     Active Substance: MAGNESIUM ISOGLYCYRRHIZINATE
     Indication: Alanine aminotransferase increased
     Dosage: 1 IN 1 D
     Route: 041
     Dates: start: 20220213, end: 20220327
  8. MAGNESIUM ISOGLYCYRRHIZINATE [Concomitant]
     Active Substance: MAGNESIUM ISOGLYCYRRHIZINATE
     Indication: Aspartate aminotransferase increased
  9. MAGNESIUM ISOGLYCYRRHIZINATE [Concomitant]
     Active Substance: MAGNESIUM ISOGLYCYRRHIZINATE
     Indication: Liver disorder
  10. MOSAPRIDE CITRATE [Concomitant]
     Active Substance: MOSAPRIDE CITRATE
     Indication: Abdominal distension
     Dosage: 3 IN 1 D
     Route: 048
     Dates: start: 20220321, end: 20220327
  11. MOSAPRIDE CITRATE [Concomitant]
     Active Substance: MOSAPRIDE CITRATE
     Indication: Gastric disorder
     Dosage: 1 IN 1 D
     Route: 048
     Dates: start: 20220225, end: 20220312
  12. CETYLPYRIDINIUM CHLORIDE [Concomitant]
     Active Substance: CETYLPYRIDINIUM CHLORIDE
     Indication: Prophylaxis
     Dosage: 1 IN 1 D
     Route: 048
     Dates: start: 20220307, end: 20220327
  13. PHOSPHOCREATINE SODIUM [Concomitant]
     Active Substance: PHOSPHOCREATINE SODIUM
     Indication: Prophylaxis
     Dosage: 1 IN 1 D
     Route: 041
     Dates: start: 20220311, end: 20220403
  14. ADENOSINE MONOPHOSPHATE FOR INJECTION [Concomitant]
     Indication: Infection prophylaxis
     Route: 042
     Dates: start: 20220213, end: 20220327
  15. BIAPENEM FOR INJECTION [Concomitant]
     Indication: Pneumonia
     Dosage: 3 IN 1 DAY
     Route: 041
     Dates: start: 20220312, end: 20220312
  16. BIAPENEM FOR INJECTION [Concomitant]
     Dosage: 4 IN 1 DAY
     Route: 041
     Dates: start: 20220313, end: 20220322
  17. HUMAN ALBUMIN SOLUTION [Concomitant]
     Indication: Hypoalbuminaemia
     Dosage: 2 IN 1 D
     Route: 041
     Dates: start: 20220324, end: 20220327
  18. VIDARABINE PHOSPHATE [Concomitant]
     Active Substance: VIDARABINE PHOSPHATE
     Indication: Viral infection
     Dosage: 1 IN 1 D
     Route: 041
     Dates: start: 20220213, end: 20220327
  19. SODIUM CREATINE PHOSPHATE FOR INJECTION [Concomitant]
     Indication: Cardiomyopathy
     Dosage: 1 IN 1 D
     Route: 041
     Dates: start: 20220213, end: 20220310
  20. VORICONAZOLE [Concomitant]
     Active Substance: VORICONAZOLE
     Indication: Product used for unknown indication
     Dosage: 2 IN 1 D
     Route: 041
     Dates: start: 20220317, end: 20220322

REACTIONS (2)
  - Respiratory failure [Recovered/Resolved]
  - Pneumonia [Not Recovered/Not Resolved]

NARRATIVE: CASE EVENT DATE: 20220326
